FAERS Safety Report 6237494-5 (Version None)
Quarter: 2009Q2

REPORT INFORMATION
  Report Type: 
  Country: None (occurrence: None)
  Receive Date: 20090619
  Receipt Date: 20090108
  Transmission Date: 20091009
  Serious: No
  Sender: FDA-Public Use
  Company Number: US-AMGEN-KDL327528

PATIENT
  Sex: Female

DRUGS (7)
  1. ARANESP [Suspect]
     Indication: MYELODYSPLASTIC SYNDROME
     Dates: start: 20070301
  2. PROCRIT [Suspect]
     Indication: MYELODYSPLASTIC SYNDROME
  3. ZESTRIL [Concomitant]
  4. PROPRANOLOL HYDROCHLORIDE [Concomitant]
  5. LANTUS [Concomitant]
  6. HUMALOG [Concomitant]
  7. SYNTHROID [Concomitant]

REACTIONS (7)
  - ASTHENIA [None]
  - DYSPNOEA [None]
  - HAEMOGLOBIN DECREASED [None]
  - HYPOACUSIS [None]
  - MALAISE [None]
  - NAIL DISCOLOURATION [None]
  - RED BLOOD CELL COUNT DECREASED [None]
